FAERS Safety Report 25086215 (Version 1)
Quarter: 2025Q1

REPORT INFORMATION
  Report Type: Spontaneous
  Country: US (occurrence: None)
  Receive Date: 20250316
  Receipt Date: 20250316
  Transmission Date: 20250409
  Serious: Yes (unspecified)
  Sender: FDA-CTU
  Company Number: None

PATIENT
  Age: 21 Year
  Sex: Male
  Weight: 74.25 kg

DRUGS (2)
  1. MONTELUKAST SODIUM [Suspect]
     Active Substance: MONTELUKAST SODIUM
     Indication: Seasonal allergy
     Dosage: OTHER QUANTITY : 1 TABLET(S);?FREQUENCY : AT BEDTIME;?
     Route: 048
     Dates: start: 20230301, end: 20250301
  2. VITAMINS [Concomitant]
     Active Substance: VITAMINS

REACTIONS (8)
  - Anxiety [None]
  - Obsessive thoughts [None]
  - Depression [None]
  - Frustration tolerance decreased [None]
  - Fear of death [None]
  - Anger [None]
  - Libido increased [None]
  - Therapy cessation [None]
